APPROVED DRUG PRODUCT: FLUCONAZOLE
Active Ingredient: FLUCONAZOLE
Strength: 200MG/5ML
Dosage Form/Route: FOR SUSPENSION;ORAL
Application: A076246 | Product #002
Applicant: HIKMA PHARMACEUTICALS USA INC
Approved: Jul 29, 2004 | RLD: No | RS: No | Type: DISCN